FAERS Safety Report 9826680 (Version 1)
Quarter: 2014Q1

REPORT INFORMATION
  Report Type: Spontaneous
  Country: US (occurrence: US)
  Receive Date: 20140117
  Receipt Date: 20140117
  Transmission Date: 20141002
  Serious: No
  Sender: FDA-Public Use
  Company Number: US-BIOGENIDEC-2014BI003150

PATIENT
  Age: 53 Year
  Sex: Female

DRUGS (17)
  1. TECFIDERA [Suspect]
     Indication: MULTIPLE SCLEROSIS
     Dates: start: 201312
  2. TECFIDERA [Suspect]
     Indication: MULTIPLE SCLEROSIS
  3. MULTAQ [Concomitant]
  4. CLONAZEPAM [Concomitant]
  5. TOPIRAMATE [Concomitant]
  6. MELOXICAM [Concomitant]
  7. AMBIEN [Concomitant]
  8. LISINOPRIL [Concomitant]
  9. WELLBUTRIN SR [Concomitant]
  10. IMITREX [Concomitant]
  11. HYDROCODONE ACETAMINOPHEN [Concomitant]
  12. METOPROLOL SUCC [Concomitant]
  13. ASPIRIN [Concomitant]
  14. CO-Q10 [Concomitant]
  15. CVS FISH OIL [Concomitant]
  16. CVS VIT D3 [Concomitant]
  17. LOESTRIN 21 [Concomitant]

REACTIONS (3)
  - Intentional underdose [Unknown]
  - Flushing [Unknown]
  - Abdominal discomfort [Unknown]
